FAERS Safety Report 16123814 (Version 2)
Quarter: 2019Q2

REPORT INFORMATION
  Report Type: Spontaneous
  Country: US (occurrence: US)
  Receive Date: 20190327
  Receipt Date: 20190425
  Transmission Date: 20190711
  Serious: No
  Sender: FDA-Public Use
  Company Number: US-GLAXOSMITHKLINE-US2019050270

PATIENT
  Age: 64 Year
  Sex: Female
  Weight: 69.39 kg

DRUGS (1)
  1. NUCALA [Suspect]
     Active Substance: MEPOLIZUMAB
     Indication: ASTHMA
     Dosage: 100 MG, CYC
     Route: 058
     Dates: start: 20171025, end: 20181126

REACTIONS (8)
  - Skin mass [Unknown]
  - Scab [Unknown]
  - Pain [Recovered/Resolved]
  - Pruritus [Recovered/Resolved]
  - Swelling [Recovered/Resolved]
  - Injection site reaction [Recovered/Resolved]
  - Papule [Unknown]
  - Urticaria [Unknown]

NARRATIVE: CASE EVENT DATE: 201809
